FAERS Safety Report 15387071 (Version 1)
Quarter: 2018Q3

REPORT INFORMATION
  Report Type: Spontaneous
  Country: US (occurrence: US)
  Receive Date: 20180914
  Receipt Date: 20180914
  Transmission Date: 20181010
  Serious: Yes (Other)
  Sender: FDA-Public Use
  Company Number: US-SA-2017SA260984

PATIENT
  Age: 54 Year
  Sex: Female
  Weight: 61.2 kg

DRUGS (7)
  1. CYTOXAN [Concomitant]
     Active Substance: CYCLOPHOSPHAMIDE
     Dosage: UNKNOWN
  2. NEXIUM [ESOMEPRAZOLE MAGNESIUM] [Concomitant]
     Dosage: UNKNOWN
  3. ADRIAMYCIN [Concomitant]
     Active Substance: DOXORUBICIN HYDROCHLORIDE
     Dosage: UNKNOWN
  4. NEOSAR [Concomitant]
     Active Substance: CYCLOPHOSPHAMIDE
     Indication: CHEMOTHERAPY
     Dosage: UNKNOWN
  5. TAXOTERE [Suspect]
     Active Substance: DOCETAXEL
     Dosage: 149 MG, Q3W
     Route: 042
     Dates: start: 20120511, end: 20120511
  6. TAXOTERE [Suspect]
     Active Substance: DOCETAXEL
     Indication: BREAST CANCER FEMALE
     Dosage: 149 MG, Q3W
     Route: 042
     Dates: start: 20120127, end: 20120127
  7. LOSARTAN. [Concomitant]
     Active Substance: LOSARTAN
     Dosage: UNKNOWN

REACTIONS (2)
  - Alopecia [Recovering/Resolving]
  - Psychological trauma [Unknown]
